FAERS Safety Report 5874177-5 (Version None)
Quarter: 2008Q3

REPORT INFORMATION
  Report Type: 
  Country: None (occurrence: None)
  Receive Date: 20080908
  Receipt Date: 20080827
  Transmission Date: 20090109
  Serious: Yes (Hospitalization)
  Sender: FDA-Public Use
  Company Number: PL-SANOFI-SYNTHELABO-A01200810401

PATIENT
  Sex: Male
  Weight: 85 kg

DRUGS (11)
  1. KALIPOZ [Concomitant]
     Indication: DRUG USE FOR UNKNOWN INDICATION
     Dosage: UNK
     Route: 065
  2. HYDROCHLOROTHIAZIDE [Concomitant]
     Indication: DRUG USE FOR UNKNOWN INDICATION
     Dosage: UNK
     Route: 065
  3. ENARENAL [Concomitant]
     Indication: DRUG USE FOR UNKNOWN INDICATION
     Dosage: UNK
     Route: 065
  4. TAMSULID [Concomitant]
     Indication: DRUG USE FOR UNKNOWN INDICATION
     Dosage: UNK
     Route: 065
  5. PROSCAR [Concomitant]
     Indication: DRUG USE FOR UNKNOWN INDICATION
     Dosage: UNK
     Route: 065
  6. PROSTAMOL UNO [Concomitant]
     Indication: DRUG USE FOR UNKNOWN INDICATION
     Dosage: UNK
     Route: 065
  7. NORMATENS [Suspect]
     Indication: ESSENTIAL HYPERTENSION
     Route: 048
     Dates: end: 20080725
  8. MIRTASTAD [Suspect]
     Indication: SLEEP DISORDER
     Route: 048
     Dates: end: 20080725
  9. ESTAZOLAM [Suspect]
     Indication: SLEEP DISORDER
     Route: 048
     Dates: end: 20080725
  10. TRANXENE [Suspect]
     Indication: SLEEP DISORDER
     Route: 048
     Dates: end: 20080725
  11. STILNOX [Suspect]
     Indication: SLEEP DISORDER
     Route: 048
     Dates: end: 20080725

REACTIONS (5)
  - BALANCE DISORDER [None]
  - DIPLOPIA [None]
  - GENERAL PHYSICAL HEALTH DETERIORATION [None]
  - ROAD TRAFFIC ACCIDENT [None]
  - SOMNOLENCE [None]
